FAERS Safety Report 23247739 (Version 1)
Quarter: 2023Q4

REPORT INFORMATION
  Report Type: Spontaneous
  Country: US (occurrence: US)
  Receive Date: 20231130
  Receipt Date: 20231130
  Transmission Date: 20240110
  Serious: No
  Sender: FDA-Public Use
  Company Number: US-PFIZER INC-PV202300190398

PATIENT
  Age: 66 Year
  Sex: Female

DRUGS (5)
  1. XELJANZ [Suspect]
     Active Substance: TOFACITINIB CITRATE
  2. METHOTREXATE [Concomitant]
     Active Substance: METHOTREXATE
  3. ORENCIA [Concomitant]
     Active Substance: ABATACEPT
  4. PREDNISONE [Concomitant]
     Active Substance: PREDNISONE
  5. MOBIC [Concomitant]
     Active Substance: MELOXICAM

REACTIONS (1)
  - Drug ineffective [Unknown]
